FAERS Safety Report 19512703 (Version 5)
Quarter: 2021Q4

REPORT INFORMATION
  Report Type: Report from Study
  Country: BR (occurrence: BR)
  Receive Date: 20210709
  Receipt Date: 20211011
  Transmission Date: 20220304
  Serious: Yes (Other)
  Sender: FDA-Public Use
  Company Number: NVSC2021BR128677

PATIENT
  Age: 67 Year
  Sex: Female
  Weight: 87 kg

DRUGS (6)
  1. KISQALI [Suspect]
     Active Substance: RIBOCICLIB
     Indication: Breast cancer metastatic
     Dosage: UNK, 5 MONTHS
     Route: 065
  2. KISQALI [Suspect]
     Active Substance: RIBOCICLIB
     Indication: Metastases to bone
     Dosage: 2 DF (2 TABLETS)
     Route: 065
     Dates: start: 202101
  3. KISQALI [Suspect]
     Active Substance: RIBOCICLIB
     Indication: Metastases to lymph nodes
     Dosage: 3 DF, QD (3 TABLETS OF 200 MG)
     Route: 048
     Dates: start: 202101, end: 202105
  4. KISQALI [Suspect]
     Active Substance: RIBOCICLIB
     Dosage: 2 DF, QD (2 TABLETS OF 200 MG)
     Route: 048
     Dates: start: 202106, end: 202108
  5. ZOMETA [Suspect]
     Active Substance: ZOLEDRONIC ACID
     Indication: Metastases to bone
     Dosage: 1 INJECTION, Q3MO
     Route: 042
     Dates: start: 2019
  6. FASLODEX [Concomitant]
     Active Substance: FULVESTRANT
     Indication: Metastases to bone
     Dosage: 2 INJECTIONS OF 5 ML, QMO
     Route: 058
     Dates: start: 202101

REACTIONS (19)
  - Sensitive skin [Not Recovered/Not Resolved]
  - Hypersensitivity [Recovering/Resolving]
  - Peripheral swelling [Not Recovered/Not Resolved]
  - Rash [Not Recovered/Not Resolved]
  - Breast cancer metastatic [Not Recovered/Not Resolved]
  - Malignant neoplasm progression [Not Recovered/Not Resolved]
  - Pain [Not Recovered/Not Resolved]
  - Skin exfoliation [Not Recovered/Not Resolved]
  - Hair growth abnormal [Not Recovered/Not Resolved]
  - Skin atrophy [Unknown]
  - Feeling hot [Unknown]
  - Pain in extremity [Unknown]
  - Dry skin [Not Recovered/Not Resolved]
  - Erythema [Not Recovered/Not Resolved]
  - Limb injury [Unknown]
  - Pruritus [Unknown]
  - Alopecia [Not Recovered/Not Resolved]
  - Inappropriate schedule of product administration [Unknown]
  - Drug ineffective [Unknown]

NARRATIVE: CASE EVENT DATE: 20210101
